FAERS Safety Report 15129089 (Version 1)
Quarter: 2018Q3

REPORT INFORMATION
  Report Type: Spontaneous
  Country: US (occurrence: US)
  Receive Date: 20180711
  Receipt Date: 20180711
  Transmission Date: 20181010
  Serious: No
  Sender: FDA-Public Use
  Company Number: US-GLENMARK PHARMACEUTICALS-2017GMK030079

PATIENT

DRUGS (1)
  1. MUPIROCIN. [Suspect]
     Active Substance: MUPIROCIN
     Indication: ANTIBIOTIC THERAPY
     Dosage: BACK OF RIGHT LEG
     Route: 061
     Dates: end: 20171208

REACTIONS (3)
  - Application site pain [Unknown]
  - Application site erythema [Unknown]
  - Product use in unapproved indication [Unknown]
